FAERS Safety Report 4810420-9 (Version None)
Quarter: 2005Q4

REPORT INFORMATION
  Report Type: 
  Country: None (occurrence: None)
  Receive Date: 20051025
  Receipt Date: 20051025
  Transmission Date: 20060501
  Serious: Yes (Hospitalization)
  Sender: FDA-Public Use
  Company Number: None

PATIENT
  Age: 53 Year
  Sex: Male
  Weight: 78.4723 kg

DRUGS (2)
  1. OXYCONTIN [Suspect]
     Indication: INTERVERTEBRAL DISC DEGENERATION
     Dosage: 40 MG TWICE DAILY PO
     Route: 048
     Dates: start: 20020317, end: 20051017
  2. OXYCONTIN [Suspect]
     Dosage: 15 MG  4 TIMES DAILY PO
     Route: 048
     Dates: start: 20020317, end: 20051017

REACTIONS (3)
  - DRUG WITHDRAWAL SYNDROME [None]
  - EMOTIONAL DISORDER [None]
  - NONSPECIFIC REACTION [None]
